FAERS Safety Report 23663898 (Version 1)
Quarter: 2024Q1

REPORT INFORMATION
  Report Type: Spontaneous
  Country: US (occurrence: US)
  Receive Date: 20240322
  Receipt Date: 20240322
  Transmission Date: 20240410
  Serious: Yes (Hospitalization, Other)
  Sender: FDA-Public Use
  Company Number: US-APOTEX-2024AP003751

PATIENT
  Age: 2 Month
  Sex: Female
  Weight: 4.8 kg

DRUGS (2)
  1. SIROLIMUS [Suspect]
     Active Substance: SIROLIMUS
     Indication: Pulmonary vein stenosis
     Dosage: UNK, TARGET LEVEL OF 6-10 MCG/L
     Route: 065
  2. ALPELISIB [Concomitant]
     Active Substance: ALPELISIB
     Indication: Pulmonary vein stenosis
     Dosage: 25 MILLIGRAM, QD
     Route: 065

REACTIONS (2)
  - Urosepsis [Recovered/Resolved]
  - Sepsis [Recovered/Resolved]
